FAERS Safety Report 8217191 (Version 5)
Quarter: 2014Q2

REPORT INFORMATION
  Report Type: Spontaneous
  Country: US (occurrence: US)
  Receive Date: 20111101
  Receipt Date: 20140508
  Transmission Date: 20141212
  Serious: Yes (Hospitalization, Other)
  Sender: FDA-Public Use
  Company Number: US-ASTRAZENECA-2011SE63609

PATIENT
  Age: 54 Year
  Sex: Female

DRUGS (7)
  1. SYMBICORT PMDI [Suspect]
     Indication: ASTHMA
     Dosage: TWO PUFFS A DAY
     Route: 055
     Dates: start: 2009
  2. SYMBICORT PMDI [Suspect]
     Indication: CHRONIC OBSTRUCTIVE PULMONARY DISEASE
     Dosage: TWO PUFFS A DAY
     Route: 055
     Dates: start: 2009
  3. SYMBICORT PMDI [Suspect]
     Indication: ASTHMA
     Dosage: THREE PUFFS, UNKNOWN
     Route: 055
  4. SYMBICORT PMDI [Suspect]
     Indication: CHRONIC OBSTRUCTIVE PULMONARY DISEASE
     Dosage: THREE PUFFS, UNKNOWN
     Route: 055
  5. SYMBICORT PMDI [Suspect]
     Indication: ASTHMA
     Dosage: 160/4.5 MCG, UNKNOWN
     Route: 055
  6. SYMBICORT PMDI [Suspect]
     Indication: CHRONIC OBSTRUCTIVE PULMONARY DISEASE
     Dosage: 160/4.5 MCG, UNKNOWN
     Route: 055
  7. ALBUTEROL [Concomitant]
     Indication: ASTHMA

REACTIONS (13)
  - Foot deformity [Unknown]
  - Joint range of motion decreased [Unknown]
  - Osteoarthritis [Unknown]
  - Chronic obstructive pulmonary disease [Unknown]
  - Dyspnoea [Unknown]
  - Bronchial secretion retention [Unknown]
  - Chest discomfort [Unknown]
  - Productive cough [Unknown]
  - Productive cough [Unknown]
  - Condition aggravated [Unknown]
  - Stress [Unknown]
  - Intentional product misuse [Unknown]
  - Intentional product misuse [Unknown]
